FAERS Safety Report 6214910-6 (Version None)
Quarter: 2009Q2

REPORT INFORMATION
  Report Type: 
  Country: None (occurrence: None)
  Receive Date: 20090604
  Receipt Date: 20090415
  Transmission Date: 20091009
  Serious: No
  Sender: FDA-Public Use
  Company Number: US-BAYER-200918693NA

PATIENT
  Sex: Male
  Weight: 58 kg

DRUGS (1)
  1. ULTRAVIST 300 [Suspect]
     Indication: COMPUTERISED TOMOGRAM
     Dosage: TOTAL DAILY DOSE: 95 ML  UNIT DOSE: 100 ML
     Route: 042
     Dates: start: 20090415, end: 20090415

REACTIONS (1)
  - URTICARIA [None]
